FAERS Safety Report 9474197 (Version 1)
Quarter: 2013Q3

REPORT INFORMATION
  Report Type: Spontaneous
  Country: BR (occurrence: BR)
  Receive Date: 20130823
  Receipt Date: 20130823
  Transmission Date: 20140515
  Serious: Yes (Other)
  Sender: FDA-Public Use
  Company Number: BR-AMGEN-BRASP2013059445

PATIENT
  Age: 39 Year
  Sex: Male
  Weight: 108 kg

DRUGS (3)
  1. ENBREL [Suspect]
     Indication: PSORIATIC ARTHROPATHY
     Dosage: 50 MG, ONCE WEEKLY
     Route: 065
     Dates: start: 201301, end: 2013
  2. PROPRANOLOL [Concomitant]
     Dosage: UNK UNK, UNK
  3. AMYTRIL [Concomitant]
     Dosage: UNK UNK, UNK

REACTIONS (7)
  - Road traffic accident [Unknown]
  - Skin plaque [Unknown]
  - Ligament rupture [Unknown]
  - Tendon rupture [Unknown]
  - Arthralgia [Unknown]
  - Motor dysfunction [Unknown]
  - Feeling abnormal [Unknown]
